FAERS Safety Report 19933935 (Version 1)
Quarter: 2021Q4

REPORT INFORMATION
  Report Type: Spontaneous
  Country: CA (occurrence: CA)
  Receive Date: 20211008
  Receipt Date: 20211008
  Transmission Date: 20220304
  Serious: Yes (Hospitalization)
  Sender: FDA-Public Use
  Company Number: CA-TEVA-2021-CA-1961763

PATIENT
  Age: 76 Year
  Sex: Male
  Weight: 75 kg

DRUGS (15)
  1. OXALIPLATIN [Suspect]
     Active Substance: OXALIPLATIN
     Indication: Colon neoplasm
     Route: 042
  2. VECTIBIX [Suspect]
     Active Substance: PANITUMUMAB
     Indication: Colon neoplasm
     Route: 042
  3. ASPIRIN [Concomitant]
     Active Substance: ASPIRIN
  4. ATORVASTATIN [Concomitant]
     Active Substance: ATORVASTATIN
  5. DIPHENHYDRAMINE [Concomitant]
     Active Substance: DIPHENHYDRAMINE
  6. DUTASTERIDE [Concomitant]
     Active Substance: DUTASTERIDE
  7. FERROUS SULFATE [Concomitant]
     Active Substance: FERROUS SULFATE
  8. LEVOTHYROXINE [Concomitant]
     Active Substance: LEVOTHYROXINE
  9. LORAZEPAM [Concomitant]
     Active Substance: LORAZEPAM
  10. METHYLPREDNISOLONE SODIUM SUCCINATE [Concomitant]
     Active Substance: METHYLPREDNISOLONE SODIUM SUCCINATE
  11. ONDANSETRON [Concomitant]
     Active Substance: ONDANSETRON
  12. PIPERACILLIN SODIUM\TAZOBACTAM SODIUM [Concomitant]
     Active Substance: PIPERACILLIN SODIUM\TAZOBACTAM SODIUM
  13. RAMIPRIL [Concomitant]
     Active Substance: RAMIPRIL
  14. RANITIDINE [Concomitant]
     Active Substance: RANITIDINE
  15. TAMSULOSIN [Concomitant]
     Active Substance: TAMSULOSIN

REACTIONS (4)
  - Acute kidney injury [Recovered/Resolved]
  - Diarrhoea [Recovered/Resolved]
  - Presyncope [Recovered/Resolved]
  - Pyrexia [Recovered/Resolved]
